FAERS Safety Report 8385653-8 (Version None)
Quarter: 2012Q2

REPORT INFORMATION
  Report Type: 
  Country: None (occurrence: None)
  Receive Date: 20120523
  Receipt Date: 20120507
  Transmission Date: 20120825
  Serious: Yes (Other)
  Sender: FDA-Public Use
  Company Number: GER/GER/12/0024098

PATIENT
  Age: 62 Year
  Sex: Female
  Weight: 74 kg

DRUGS (9)
  1. BISOPROLOL FUMARATE [Concomitant]
  2. RAMIPRIL [Concomitant]
  3. ASPIRIN [Concomitant]
  4. SIMVASTATIN [Suspect]
     Indication: HYPERLIPIDAEMIA
     Dosage: 1.5 DOSAGE FORMS, IN THE EVENING
     Dates: start: 20100505, end: 20120101
  5. SIMVASTATIN [Suspect]
     Indication: HYPERLIPIDAEMIA
     Dosage: 60 MG, IN THE EVENING, ORAL
     Route: 048
     Dates: start: 20100505, end: 20120405
  6. PENTAERYTHRITOL TETRANITRATE [Concomitant]
  7. RAMIPRIL [Concomitant]
  8. ARCUMAR (PHENPROCOUMON) [Concomitant]
  9. L-THYROXIN 100UG (LEVOTHYROXINE SODIUM) [Concomitant]

REACTIONS (5)
  - FALL [None]
  - MUSCULAR WEAKNESS [None]
  - LETHARGY [None]
  - DYSPNOEA [None]
  - MYALGIA [None]
